FAERS Safety Report 10276689 (Version 1)
Quarter: 2014Q3

REPORT INFORMATION
  Report Type: Spontaneous
  Country: US (occurrence: US)
  Receive Date: 20140703
  Receipt Date: 20140703
  Transmission Date: 20150326
  Serious: Yes (Other)
  Sender: FDA-Public Use
  Company Number: PHHY2014US080047

PATIENT
  Age: 53 Year
  Sex: Female

DRUGS (8)
  1. MORPHINE [Concomitant]
     Active Substance: MORPHINE
  2. METFORMIN [Concomitant]
     Active Substance: METFORMIN HYDROCHLORIDE
  3. CITALOPRAM [Concomitant]
     Active Substance: CITALOPRAM HYDROBROMIDE
  4. SERTRALINE [Suspect]
     Active Substance: SERTRALINE HYDROCHLORIDE
  5. HYDROCODONE [Concomitant]
     Active Substance: HYDROCODONE
  6. BUPROPION [Concomitant]
     Active Substance: BUPROPION
  7. PROMETHAZINE//PROMETHAZINE HYDROCHLORIDE [Concomitant]
  8. DIPHENHYDRAMINE [Concomitant]
     Active Substance: DIPHENHYDRAMINE

REACTIONS (22)
  - Abdominal rigidity [Recovered/Resolved]
  - Mucosal dryness [Unknown]
  - Respiratory acidosis [Unknown]
  - Balance disorder [Recovered/Resolved]
  - Renal failure acute [Unknown]
  - Tremor [Recovered/Resolved]
  - Myoclonus [Recovered/Resolved]
  - Leukocytosis [Unknown]
  - Blood lactic acid increased [Unknown]
  - Serotonin syndrome [Recovered/Resolved]
  - Toxicity to various agents [Recovered/Resolved]
  - Memory impairment [Recovered/Resolved]
  - Dyskinesia [Recovered/Resolved]
  - Tachycardia [Recovered/Resolved]
  - Urinary retention [Unknown]
  - Hyponatraemia [Unknown]
  - Confusional state [Recovered/Resolved]
  - Disorientation [Recovered/Resolved]
  - Dyspnoea [Unknown]
  - Metabolic acidosis [Unknown]
  - Cough [Unknown]
  - Blood creatine phosphokinase increased [Unknown]
